FAERS Safety Report 25703965 (Version 2)
Quarter: 2025Q4

REPORT INFORMATION
  Report Type: Spontaneous
  Country: CA (occurrence: CA)
  Receive Date: 20250820
  Receipt Date: 20251009
  Transmission Date: 20260118
  Serious: Yes (Hospitalization, Other)
  Sender: CELLTRION
  Company Number: CA-PFIZER INC-202500161444

PATIENT

DRUGS (6)
  1. INFLECTRA [Suspect]
     Active Substance: INFLIXIMAB-DYYB
     Indication: Takayasu^s arteritis
     Dosage: 300 MG, EVERY 8 WEEKS
     Dates: start: 20250514
  2. AMLODIPINE [Concomitant]
     Active Substance: AMLODIPINE BESYLATE
     Dosage: 10 MG, 1X/DAY
  3. ASPIRIN [Concomitant]
     Active Substance: ASPIRIN
     Dosage: 81 MG, 1X/DAY
  4. PREDNISONE [Concomitant]
     Active Substance: PREDNISONE
     Dosage: 2.5 MG, DAILY
  5. RAMIPRIL [Concomitant]
     Active Substance: RAMIPRIL
     Dosage: 10 MG, 1X/DAY
  6. TEGRETOL [Concomitant]
     Active Substance: CARBAMAZEPINE
     Dosage: 300 MG, 1X/DAY

REACTIONS (2)
  - Pneumonia [Unknown]
  - Respiratory fume inhalation disorder [Unknown]
